FAERS Safety Report 4837104-5 (Version None)
Quarter: 2005Q4

REPORT INFORMATION
  Report Type: 
  Country: None (occurrence: None)
  Receive Date: 20051121
  Receipt Date: 20051121
  Transmission Date: 20060501
  Serious: Yes (Hospitalization, Other)
  Sender: FDA-Public Use
  Company Number: None

PATIENT
  Sex: Female
  Weight: 125.9 kg

DRUGS (5)
  1. CYCLOPHOSPHAMIDE [Suspect]
     Indication: ACUTE LYMPHOCYTIC LEUKAEMIA
     Dosage: SEE IMAGE
     Dates: start: 20051015
  2. DAUNORUBICIN HCL [Suspect]
     Dosage: SEE IMAGE
  3. DEXAMETHASONE [Suspect]
     Dosage: SEE IMAGE
  4. L-ASPARAGINASE [Suspect]
     Dosage: SEE IMAGE
  5. VINCRISTINE SULFATE [Suspect]
     Dosage: SEE IMAGE

REACTIONS (4)
  - ASTHENIA [None]
  - FALL [None]
  - HEAD INJURY [None]
  - MYOPATHY STEROID [None]
